FAERS Safety Report 4286297-X (Version None)
Quarter: 2004Q1

REPORT INFORMATION
  Report Type: 
  Country: None (occurrence: None)
  Receive Date: 20040129
  Receipt Date: 20030228
  Transmission Date: 20041129
  Serious: Yes (Hospitalization)
  Sender: FDA-Public Use
  Company Number: A001-002-005529

PATIENT
  Age: 87 Year
  Sex: Male
  Weight: 63.5036 kg

DRUGS (13)
  1. ARICEPT [Suspect]
     Indication: DELUSION
     Dosage: 5 MG, 1 IN 1 D; ORAL
     Route: 048
     Dates: start: 20030101
  2. ARICEPT [Suspect]
     Indication: DEMENTIA
     Dosage: 5 MG, 1 IN 1 D; ORAL
     Route: 048
     Dates: start: 20030101
  3. CORDARONE [Concomitant]
  4. LANOXIN [Concomitant]
  5. KLONOPIN [Concomitant]
  6. ZANTAC [Concomitant]
  7. SYNTHROID [Concomitant]
  8. COZAAR [Concomitant]
  9. IMDUE (ISOSORBIDE MONONITRATE) [Concomitant]
  10. DEMADEX [Concomitant]
  11. TOPROL-XL [Concomitant]
  12. TOFRANIL [Concomitant]
  13. ACETYLSALICYLIC ACID SRT [Concomitant]

REACTIONS (2)
  - CELLULITIS [None]
  - GOUT [None]
